FAERS Safety Report 6712797-6 (Version None)
Quarter: 2010Q2

REPORT INFORMATION
  Report Type: 
  Country: None (occurrence: None)
  Receive Date: 20100506
  Receipt Date: 20090512
  Transmission Date: 20101027
  Serious: No
  Sender: FDA-Public Use
  Company Number: A0783761A

PATIENT
  Age: 63 Year
  Sex: Male

DRUGS (5)
  1. AUGMENTIN '125' [Suspect]
     Indication: SKIN INFECTION
     Dosage: 500MG TWICE PER DAY
     Route: 048
     Dates: start: 20090410, end: 20090417
  2. COREG [Concomitant]
  3. PROTONIX [Concomitant]
  4. NIACIN [Concomitant]
  5. FISH OIL [Concomitant]

REACTIONS (2)
  - PRURITUS [None]
  - RASH [None]
